FAERS Safety Report 7208588-2 (Version None)
Quarter: 2011Q1

REPORT INFORMATION
  Report Type: 
  Country: None (occurrence: None)
  Receive Date: 20110104
  Receipt Date: 20101210
  Transmission Date: 20110831
  Serious: No
  Sender: FDA-Public Use
  Company Number: US-B.I. PHARMACEUTICALS,INC./RIDGEFIELD-2010-BP-14221BP

PATIENT
  Sex: Male

DRUGS (7)
  1. DIGOXIN [Concomitant]
     Indication: ATRIAL FIBRILLATION
  2. COUMADIN [Concomitant]
     Indication: ATRIAL FIBRILLATION
     Dates: start: 20101124
  3. PRADAXA [Suspect]
     Indication: CEREBROVASCULAR ACCIDENT PROPHYLAXIS
     Dosage: 300 MG
     Route: 048
     Dates: start: 20101123, end: 20101123
  4. PRADAXA [Suspect]
     Indication: ATRIAL FIBRILLATION
  5. VITAMIN TAB [Concomitant]
     Indication: PROPHYLAXIS
  6. FISH OIL [Concomitant]
     Indication: PROPHYLAXIS
  7. METOPROLOL [Concomitant]

REACTIONS (1)
  - OESOPHAGEAL PAIN [None]
